FAERS Safety Report 13845197 (Version 4)
Quarter: 2017Q3

REPORT INFORMATION
  Report Type: Report from Study
  Country: CA (occurrence: CA)
  Receive Date: 20170808
  Receipt Date: 20170919
  Transmission Date: 20171127
  Serious: Yes (Hospitalization)
  Sender: FDA-Public Use
  Company Number: CA-ROCHE-1975029

PATIENT
  Age: 41 Year
  Sex: Female
  Weight: 115.3 kg

DRUGS (17)
  1. GABAPENTIN. [Concomitant]
     Active Substance: GABAPENTIN
  2. VITAMIN B12 [Concomitant]
     Active Substance: CYANOCOBALAMIN
  3. FOLIC ACID. [Concomitant]
     Active Substance: FOLIC ACID
  4. RISEDRONATE [Concomitant]
     Active Substance: RISEDRONATE SODIUM
  5. PAXIL (CANADA) [Concomitant]
  6. ACTEMRA [Suspect]
     Active Substance: TOCILIZUMAB
     Route: 042
     Dates: start: 20170807
  7. DEMULEN [Concomitant]
     Active Substance: ETHINYL ESTRADIOL\ETHYNODIOL
  8. TUMS [Concomitant]
     Active Substance: CALCIUM CARBONATE
  9. PREDNISONE. [Concomitant]
     Active Substance: PREDNISONE
  10. SYNTHROID [Concomitant]
     Active Substance: LEVOTHYROXINE SODIUM
  11. NPH (INSULIN) [Concomitant]
  12. ACTEMRA [Suspect]
     Active Substance: TOCILIZUMAB
     Route: 042
     Dates: start: 20170908
  13. ANAKINRA [Concomitant]
     Active Substance: ANAKINRA
     Dosage: STOPPING
     Route: 065
  14. TECTA [Concomitant]
     Active Substance: PANTOPRAZOLE MAGNESIUM
  15. HUMALOG [Concomitant]
     Active Substance: INSULIN LISPRO
  16. ACTEMRA [Suspect]
     Active Substance: TOCILIZUMAB
     Indication: STILL^S DISEASE
     Route: 042
  17. CETIRIZINE [Concomitant]
     Active Substance: CETIRIZINE HYDROCHLORIDE

REACTIONS (6)
  - Cough [Unknown]
  - Flushing [Unknown]
  - Rash [Unknown]
  - Arthralgia [Unknown]
  - Infusion related reaction [Unknown]
  - Pyrexia [Unknown]

NARRATIVE: CASE EVENT DATE: 20170908
